FAERS Safety Report 7397380-4 (Version None)
Quarter: 2011Q2

REPORT INFORMATION
  Report Type: 
  Country: None (occurrence: None)
  Receive Date: 20110406
  Receipt Date: 20110404
  Transmission Date: 20111010
  Serious: No
  Sender: FDA-Public Use
  Company Number: US-PFIZER INC-2011074399

PATIENT
  Sex: Female
  Weight: 54.88 kg

DRUGS (2)
  1. ATENOLOL [Concomitant]
     Indication: BLOOD PRESSURE ABNORMAL
     Dosage: 50 MG, UNK
  2. PRISTIQ [Suspect]
     Indication: DEPRESSION
     Dosage: 50 MG, 1X/DAY
     Route: 048
     Dates: start: 20110301

REACTIONS (7)
  - APATHY [None]
  - WEIGHT DECREASED [None]
  - FATIGUE [None]
  - BURNING SENSATION [None]
  - AGITATION [None]
  - SKIN BURNING SENSATION [None]
  - DRUG INEFFECTIVE [None]
